FAERS Safety Report 15865512 (Version 1)
Quarter: 2019Q1

REPORT INFORMATION
  Report Type: Spontaneous
  Country: FR (occurrence: FR)
  Receive Date: 20190125
  Receipt Date: 20190125
  Transmission Date: 20190417
  Serious: Yes (Hospitalization)
  Sender: FDA-Public Use
  Company Number: FR-BAXTER-2018BAX031005

PATIENT
  Age: 5 Year
  Sex: Female
  Weight: 12 kg

DRUGS (3)
  1. GLUCOSE 10% BAXTER, SOLUTION POUR PERFUSION [Suspect]
     Active Substance: DEXTROSE
     Indication: PRODUCT USED FOR UNKNOWN INDICATION
     Dosage: G5
     Route: 041
     Dates: start: 20181124, end: 20181124
  2. CALCIUM GLUCONATE. [Suspect]
     Active Substance: CALCIUM GLUCONATE
     Indication: PRODUCT USED FOR UNKNOWN INDICATION
     Route: 041
     Dates: start: 20181124, end: 20181124
  3. CHLORURE DE SODIUM A 0,9 POUR CENT BAXTER, SOLUTION POUR PERFUSION EN [Suspect]
     Active Substance: SODIUM CHLORIDE
     Indication: PRODUCT USED FOR UNKNOWN INDICATION
     Route: 041
     Dates: start: 20181124, end: 20181124

REACTIONS (3)
  - Infusion site induration [Recovered/Resolved]
  - Infusion site extravasation [Recovered/Resolved]
  - Infusion site oedema [Recovered/Resolved]

NARRATIVE: CASE EVENT DATE: 20181124
